FAERS Safety Report 5134420-7 (Version None)
Quarter: 2006Q4

REPORT INFORMATION
  Report Type: 
  Country: None (occurrence: None)
  Receive Date: 20061023
  Receipt Date: 20061023
  Transmission Date: 20070319
  Serious: No
  Sender: FDA-Public Use
  Company Number: None

PATIENT
  Age: 26 Year
  Sex: Female
  Weight: 67.1324 kg

DRUGS (1)
  1. EFFEXOR [Suspect]
     Dosage: QD

REACTIONS (3)
  - ABNORMAL BEHAVIOUR [None]
  - ALCOHOLISM [None]
  - SOMNOLENCE [None]
